FAERS Safety Report 6994073-X (Version None)
Quarter: 2010Q3

REPORT INFORMATION
  Report Type: 
  Country: None (occurrence: None)
  Receive Date: 20100917
  Receipt Date: 20070601
  Transmission Date: 20110219
  Serious: Yes (Hospitalization)
  Sender: FDA-Public Use
  Company Number: US-ASTRAZENECA-2006UW23324

PATIENT
  Age: 26 Year
  Sex: Female
  Weight: 91.6 kg

DRUGS (21)
  1. SEROQUEL [Suspect]
     Indication: BIPOLAR I DISORDER
     Route: 048
     Dates: start: 19990101
  2. SEROQUEL [Suspect]
     Indication: BIPOLAR DISORDER
     Route: 048
     Dates: start: 19990101
  3. SEROQUEL [Suspect]
     Indication: SLEEP DISORDER
     Route: 048
     Dates: start: 19990101
  4. SEROQUEL [Suspect]
     Route: 048
     Dates: start: 20061201
  5. SEROQUEL [Suspect]
     Route: 048
     Dates: start: 20061201
  6. SEROQUEL [Suspect]
     Route: 048
     Dates: start: 20061201
  7. SEROQUEL [Suspect]
     Dosage: 2 AT BEDTIME
     Route: 048
  8. SEROQUEL [Suspect]
     Dosage: 2 AT BEDTIME
     Route: 048
  9. SEROQUEL [Suspect]
     Dosage: 2 AT BEDTIME
     Route: 048
  10. ABILIFY [Concomitant]
     Dates: start: 20050701
  11. RISPERDAL [Concomitant]
     Dates: start: 19990101, end: 20000101
  12. ZYPREXA [Concomitant]
     Dates: start: 19990101
  13. TRAZODONE HCL [Concomitant]
     Indication: SLEEP DISORDER
  14. WELLBUTRIN [Concomitant]
     Dates: start: 20020913
  15. KLONOPIN [Concomitant]
     Dosage: 1-50 MG
     Dates: start: 20030416
  16. ELMIRON [Concomitant]
     Indication: CYSTITIS
     Dates: start: 20030313
  17. ATENOLOL [Concomitant]
     Dates: start: 20060206
  18. TYLENOL [Concomitant]
     Indication: PAIN
     Route: 048
     Dates: start: 19921206
  19. TYLENOL [Concomitant]
     Indication: PYREXIA
     Route: 048
     Dates: start: 19921206
  20. TYLENOL [Concomitant]
     Route: 048
     Dates: start: 19921206
  21. MOTRIN [Concomitant]
     Indication: PAIN
     Dosage: 600-2400 MG
     Route: 048
     Dates: start: 19981118

REACTIONS (7)
  - ANXIETY [None]
  - INSOMNIA [None]
  - OBSESSIVE-COMPULSIVE DISORDER [None]
  - PANIC ATTACK [None]
  - SUICIDAL IDEATION [None]
  - TYPE 1 DIABETES MELLITUS [None]
  - TYPE 2 DIABETES MELLITUS [None]
